FAERS Safety Report 9468195 (Version 1)
Quarter: 2013Q3

REPORT INFORMATION
  Report Type: Spontaneous
  Country: GB (occurrence: GB)
  Receive Date: 20130821
  Receipt Date: 20130821
  Transmission Date: 20140515
  Serious: Yes (Other)
  Sender: FDA-Public Use
  Company Number: GB-TEVA-425712ISR

PATIENT
  Sex: Male
  Weight: 80 kg

DRUGS (1)
  1. PHENYTOIN [Suspect]
     Indication: STATUS EPILEPTICUS
     Route: 042
     Dates: start: 20130629, end: 20130702

REACTIONS (1)
  - Alanine aminotransferase increased [Recovered/Resolved]
